FAERS Safety Report 8815285 (Version 2)
Quarter: 2012Q4

REPORT INFORMATION
  Report Type: Report from Study
  Country: HK (occurrence: HK)
  Receive Date: 20120928
  Receipt Date: 20121026
  Transmission Date: 20130627
  Serious: Yes (Hospitalization)
  Sender: FDA-Public Use
  Company Number: HK-PFIZER INC-2012184618

PATIENT
  Age: 68 Year
  Sex: Male
  Weight: 55.9 kg

DRUGS (12)
  1. SUNITINIB MALATE [Suspect]
     Indication: NON-SMALL CELL LUNG CANCER
     Dosage: 37.5 mg, 1x/day
     Route: 048
     Dates: start: 20080923, end: 20120826
  2. ERLOTINIB HYDROCHLORIDE [Suspect]
     Indication: NON-SMALL CELL LUNG CANCER
     Dosage: 150 mg, 1x/day
     Route: 048
     Dates: start: 20080923, end: 20120826
  3. FUSIDIC ACID [Concomitant]
     Indication: RASH
     Dosage: apply to affected areas, BD
     Route: 061
     Dates: start: 20120727
  4. DOMPERIDONE [Concomitant]
     Indication: EPIGASTRIC DISCOMFORT
     Dosage: 10 mg, 3x/day
     Route: 048
     Dates: start: 20120727
  5. DIMETHYLPOLYSILOXANE [Concomitant]
     Indication: DIARRHOEA
     Dosage: 40 mg, 3x/day
     Route: 048
     Dates: start: 20120718
  6. FORTIFER [Concomitant]
     Indication: ANAEMIA
     Dosage: 1 tab, 1x/day
     Route: 048
     Dates: start: 20120627
  7. PANTOPRAZOLE [Concomitant]
     Indication: EPIGASTRIC DISCOMFORT
     Dosage: 20 mg, 1x/day
     Route: 048
     Dates: start: 20120627
  8. ENERVON-C [Concomitant]
     Indication: SUPPLEMENTATION THERAPY
     Dosage: 1 tab, 1x/day
     Route: 048
     Dates: start: 20120530
  9. FAMOTIDINE [Concomitant]
     Indication: EPIGASTRIC DISCOMFORT
     Dosage: 20 mg, 2x/day
     Route: 048
     Dates: start: 20120530
  10. LOPERAMIDE [Concomitant]
     Indication: DIARRHOEA
     Dosage: 2 mg, 3x/day
     Route: 048
     Dates: start: 20120530
  11. MEGESTROL ACETATE [Concomitant]
     Indication: EPIGASTRIC DISCOMFORT
     Dosage: 40 mg, 1x/day
     Route: 048
     Dates: start: 20120530
  12. SODIUM CHLORIDE [Concomitant]
     Indication: DRY EYE
     Dosage: 3 drops, 3x/day
     Route: 047
     Dates: start: 20120530

REACTIONS (1)
  - Focal segmental glomerulosclerosis [Recovered/Resolved with Sequelae]
